FAERS Safety Report 4317297-9 (Version None)
Quarter: 2004Q1

REPORT INFORMATION
  Report Type: 
  Country: None (occurrence: None)
  Receive Date: 20040312
  Receipt Date: 20040303
  Transmission Date: 20041129
  Serious: Yes (Other)
  Sender: FDA-Public Use
  Company Number: 2004014931

PATIENT
  Age: 72 Year
  Sex: Female

DRUGS (3)
  1. SULPERAZON (CEFOPERAZONE, SULBACTAM) [Suspect]
     Indication: PYREXIA
     Dosage: 2 GRAM INTRAVENOUS
     Route: 042
     Dates: start: 20040201, end: 20040227
  2. FAMOTIDINE [Concomitant]
  3. FULCALIQ (MIXED AMINO ACID/CARBOHYDRATE/ELECTROLYTE/VITAMIN) (GLUCOSE, [Concomitant]

REACTIONS (1)
  - ANAPHYLACTOID REACTION [None]
